FAERS Safety Report 10061365 (Version 2)
Quarter: 2014Q2

REPORT INFORMATION
  Report Type: Report from Study
  Country: CO (occurrence: CO)
  Receive Date: 20140407
  Receipt Date: 20140409
  Transmission Date: 20141212
  Serious: Yes (Death, Other)
  Sender: FDA-Public Use
  Company Number: CO-ROCHE-1378367

PATIENT
  Age: 77 Year
  Sex: Male

DRUGS (2)
  1. RANIBIZUMAB [Suspect]
     Indication: BLINDNESS
     Route: 050
     Dates: start: 20120321
  2. RANIBIZUMAB [Suspect]
     Route: 050
     Dates: start: 20121129

REACTIONS (3)
  - Death [Fatal]
  - Head injury [Unknown]
  - Inappropriate schedule of drug administration [Unknown]
